FAERS Safety Report 21143702 (Version 1)
Quarter: 2022Q3

REPORT INFORMATION
  Report Type: Spontaneous
  Country: US (occurrence: None)
  Receive Date: 20220728
  Receipt Date: 20220728
  Transmission Date: 20221027
  Serious: Yes (Hospitalization)
  Sender: FDA-Public Use
  Company Number: None

PATIENT
  Age: 53 Year
  Sex: Female
  Weight: 62.1 kg

DRUGS (9)
  1. MAGNESIUM CITRATE [Suspect]
     Active Substance: MAGNESIUM CITRATE
     Indication: Enema administration
     Dosage: OTHER STRENGTH : NA;?OTHER QUANTITY : 1 BOTTLE;?FREQUENCY : DAILY;?
     Route: 048
     Dates: start: 20210222, end: 20210222
  2. Estridol [Concomitant]
  3. VITAMIN D [Concomitant]
     Active Substance: VITAMIN D NOS
  4. VITAMIN C [Concomitant]
     Active Substance: ASCORBIC ACID
  5. ZINC [Concomitant]
     Active Substance: ZINC
  6. MAGNESIUM [Concomitant]
     Active Substance: MAGNESIUM
  7. CALCIUM [Concomitant]
     Active Substance: CALCIUM
  8. IRON [Concomitant]
     Active Substance: IRON
  9. PROBIOTICS NOS [Concomitant]
     Active Substance: PROBIOTICS NOS

REACTIONS (2)
  - Infection [None]
  - Gastrointestinal disorder [None]

NARRATIVE: CASE EVENT DATE: 20210308
